FAERS Safety Report 9215942 (Version 1)
Quarter: 2013Q2

REPORT INFORMATION
  Report Type: Spontaneous
  Country: US (occurrence: None)
  Receive Date: 20130403
  Receipt Date: 20130403
  Transmission Date: 20140414
  Serious: Yes (Hospitalization)
  Sender: FDA-Public Use
  Company Number: 2013STPI000111

PATIENT
  Age: 6 Year
  Sex: Female
  Weight: 23.6 kg

DRUGS (5)
  1. ONCASPAR [Suspect]
     Indication: CHRONIC LYMPHOCYTIC LEUKAEMIA
     Dates: start: 20130123, end: 20130213
  2. VELCADE (BORTAZOMIB0 [Suspect]
     Indication: CHRONIC LYMPHOCYTIC LEUKAEMIA
     Dates: start: 20130123, end: 20130202
  3. CYTARABINE [Suspect]
     Indication: CHRONIC LYMPHOCYTIC LEUKAEMIA
     Route: 037
     Dates: start: 20130123, end: 20130123
  4. DOXORUBICIN HYDROCHLORIDE [Suspect]
     Indication: CHRONIC LYMPHOCYTIC LEUKAEMIA
     Route: 042
     Dates: start: 20130123, end: 20130123
  5. PREDNISONE (PREDNISONE) [Suspect]
     Indication: CHRONIC LYMPHOCYTIC LEUKAEMIA
     Route: 048
     Dates: start: 20130123, end: 20130219

REACTIONS (4)
  - Infective myositis [None]
  - Neutropenia [None]
  - Pain in extremity [None]
  - Fall [None]
